FAERS Safety Report 12370647 (Version 1)
Quarter: 2016Q2

REPORT INFORMATION
  Report Type: Report from Study
  Country: EG (occurrence: EG)
  Receive Date: 20160516
  Receipt Date: 20160516
  Transmission Date: 20160815
  Serious: Yes (Hospitalization, Other)
  Sender: FDA-Public Use
  Company Number: EG-ELI_LILLY_AND_COMPANY-EG201603008195

PATIENT
  Age: 35 Year
  Sex: Female

DRUGS (8)
  1. INSULIN, HUMAN [Suspect]
     Active Substance: INSULIN HUMAN
     Indication: DIABETES MELLITUS
     Dosage: 70 IU, EACH MORNING
     Route: 058
     Dates: start: 2009
  2. INSULIN, HUMAN [Suspect]
     Active Substance: INSULIN HUMAN
     Dosage: 10 IU, EACH EVENING
     Route: 058
     Dates: start: 2009
  3. HYDROQUINE [Concomitant]
     Indication: SYSTEMIC LUPUS ERYTHEMATOSUS
     Dosage: 1 DF, QD
     Route: 048
  4. GLUCOPHAGE [Suspect]
     Active Substance: METFORMIN HYDROCHLORIDE
     Indication: DIABETES MELLITUS
     Dosage: 1 DF, QD
     Route: 048
  5. ELTROXIN [Concomitant]
     Active Substance: LEVOTHYROXINE
     Indication: THYROID DISORDER
     Dosage: 200 MG, QD
     Route: 048
  6. CORTISOL [Concomitant]
     Active Substance: HYDROCORTISONE
     Indication: SYSTEMIC LUPUS ERYTHEMATOSUS
  7. INSULIN, HUMAN [Suspect]
     Active Substance: INSULIN HUMAN
     Dosage: 45 IU, EACH MORNING
     Route: 058
  8. INSULIN, HUMAN [Suspect]
     Active Substance: INSULIN HUMAN
     Dosage: 25 IU, EACH EVENING
     Route: 058

REACTIONS (7)
  - Hypoglycaemic coma [Recovering/Resolving]
  - Fatigue [Unknown]
  - Hypoglycaemia [Recovering/Resolving]
  - Loss of consciousness [Unknown]
  - Hypoglycaemia [Recovering/Resolving]
  - Glycosylated haemoglobin increased [Unknown]
  - Stress [Unknown]

NARRATIVE: CASE EVENT DATE: 201602
